FAERS Safety Report 7590717-2 (Version None)
Quarter: 2011Q3

REPORT INFORMATION
  Report Type: 
  Country: None (occurrence: None)
  Receive Date: 20110705
  Receipt Date: 20110620
  Transmission Date: 20111222
  Serious: Yes (Death, Hospitalization)
  Sender: FDA-Public Use
  Company Number: DE-ACTELION-A-US2011-51067

PATIENT

DRUGS (4)
  1. COUMADIN [Concomitant]
  2. TRACLEER [Concomitant]
     Indication: PULMONARY ARTERIAL HYPERTENSION
     Dosage: UNK
     Dates: start: 20051116
  3. CITALOPRAM [Concomitant]
  4. VENTAVIS [Suspect]
     Indication: PULMONARY HYPERTENSION
     Dosage: 2 UG, OD
     Route: 055
     Dates: start: 20110607

REACTIONS (5)
  - LOSS OF CONSCIOUSNESS [None]
  - CYANOSIS [None]
  - BRADYCARDIA [None]
  - CARDIAC ARREST [None]
  - PYREXIA [None]
